FAERS Safety Report 9255414 (Version 1)
Quarter: 2013Q2

REPORT INFORMATION
  Report Type: Spontaneous
  Country: US (occurrence: None)
  Receive Date: 20130423
  Receipt Date: 20130423
  Transmission Date: 20140414
  Serious: Yes (Hospitalization)
  Sender: FDA-Public Use
  Company Number: None

PATIENT
  Age: 50 Year
  Sex: Female
  Weight: 90.72 kg

DRUGS (1)
  1. BUTALBITAL, ACETAMINOPHEN, AND CAFFEINE [Suspect]
     Indication: MIGRAINE
     Dosage: 12/17/2007 -- 12/21/2013
     Dates: start: 20071217

REACTIONS (6)
  - Road traffic accident [None]
  - Drug label confusion [None]
  - Syncope [None]
  - Dizziness [None]
  - Confusional state [None]
  - Poor quality drug administered [None]
